APPROVED DRUG PRODUCT: DRIXORAL
Active Ingredient: DEXBROMPHENIRAMINE MALEATE; PSEUDOEPHEDRINE SULFATE
Strength: 6MG;120MG **Federal Register determination that product was not discontinued or withdrawn for safety or effectiveness reasons**
Dosage Form/Route: TABLET, EXTENDED RELEASE;ORAL
Application: N013483 | Product #003
Applicant: SCHERING PLOUGH HEALTHCARE PRODUCTS INC
Approved: Sep 13, 1982 | RLD: Yes | RS: No | Type: DISCN